FAERS Safety Report 5022059-3 (Version None)
Quarter: 2006Q2

REPORT INFORMATION
  Report Type: 
  Country: None (occurrence: None)
  Receive Date: 20060428
  Receipt Date: 20060315
  Transmission Date: 20061013
  Serious: No
  Sender: FDA-Public Use
  Company Number: COT_0481_2006

PATIENT
  Age: 68 Year
  Sex: Female
  Weight: 62.5964 kg

DRUGS (5)
  1. VENTAVIS [Suspect]
     Indication: PULMONARY HYPERTENSION
     Dosage: 5 MCG 6XD IH
     Route: 055
     Dates: start: 20051201
  2. CELEBREX [Concomitant]
  3. LEVOXYL [Concomitant]
  4. COUMADIN [Concomitant]
  5. TRACLEER [Concomitant]

REACTIONS (1)
  - LUNG INFILTRATION [None]
